FAERS Safety Report 18671974 (Version 1)
Quarter: 2020Q4

REPORT INFORMATION
  Report Type: Spontaneous
  Country: US (occurrence: US)
  Receive Date: 20201229
  Receipt Date: 20201229
  Transmission Date: 20210114
  Serious: No
  Sender: FDA-Public Use
  Company Number: US-RECORDATI RARE DISEASES-2103557

PATIENT
  Age: 34 Year
  Sex: Male

DRUGS (4)
  1. LISINOPRIL. [Concomitant]
     Active Substance: LISINOPRIL
     Dates: start: 2020
  2. LISINOPRIL. [Concomitant]
     Active Substance: LISINOPRIL
  3. LISINOPRIL. [Concomitant]
     Active Substance: LISINOPRIL
  4. SIGNIFOR LAR [Suspect]
     Active Substance: PASIREOTIDE PAMOATE
     Indication: PITUITARY-DEPENDENT CUSHING^S SYNDROME
     Dates: start: 20200612

REACTIONS (3)
  - Memory impairment [Not Recovered/Not Resolved]
  - Heart rate increased [Unknown]
  - Somnolence [Unknown]

NARRATIVE: CASE EVENT DATE: 2020
